FAERS Safety Report 9798999 (Version 1)
Quarter: 2014Q1

REPORT INFORMATION
  Report Type: Spontaneous
  Country: US (occurrence: None)
  Receive Date: 20140103
  Receipt Date: 20140103
  Transmission Date: 20141002
  Serious: Yes (Death, Life-Threatening, Hospitalization, Disabling, Other)
  Sender: FDA-Public Use
  Company Number: None

PATIENT
  Age: 69 Year
  Sex: Female
  Weight: 108.86 kg

DRUGS (1)
  1. CRESTOR [Suspect]
     Indication: HYPERCHOLESTEROLAEMIA
     Dosage: 1 PILL  1/DAY
     Dates: start: 20130329, end: 20130423

REACTIONS (5)
  - Immobile [None]
  - Malaise [None]
  - Asthenia [None]
  - Cognitive disorder [None]
  - Activities of daily living impaired [None]
